FAERS Safety Report 16188605 (Version 1)
Quarter: 2019Q2

REPORT INFORMATION
  Report Type: Spontaneous
  Country: DE (occurrence: DE)
  Receive Date: 20190412
  Receipt Date: 20190412
  Transmission Date: 20190711
  Serious: Yes (Hospitalization, Other)
  Sender: FDA-Public Use
  Company Number: PHHY2019DE079324

PATIENT
  Age: 67 Year
  Sex: Male

DRUGS (6)
  1. LITHIUM CARBONATE. [Suspect]
     Active Substance: LITHIUM CARBONATE
     Dosage: 1.2 G, QD
     Route: 065
  2. IBUPROFEN. [Suspect]
     Active Substance: IBUPROFEN
     Indication: NASOPHARYNGITIS
     Dosage: UNK
     Route: 065
  3. LISINOPRIL. [Suspect]
     Active Substance: LISINOPRIL
     Indication: HYPERTENSION
     Dosage: 20 MG, UNK
     Route: 065
  4. LITHIUM CARBONATE. [Suspect]
     Active Substance: LITHIUM CARBONATE
     Dosage: 1.35 G, QD
     Route: 065
     Dates: start: 2005
  5. LITHIUM CARBONATE. [Suspect]
     Active Substance: LITHIUM CARBONATE
     Indication: BIPOLAR DISORDER
     Dosage: 0.8 G, QD
     Route: 065
     Dates: start: 1998
  6. LITHIUM CARBONATE. [Suspect]
     Active Substance: LITHIUM CARBONATE
     Dosage: 1 G, QD
     Route: 065
     Dates: start: 2000

REACTIONS (11)
  - Disorientation [Recovering/Resolving]
  - Ataxia [Recovering/Resolving]
  - Tremor [Recovering/Resolving]
  - Dysphagia [Recovering/Resolving]
  - Apraxia [Recovering/Resolving]
  - Agitation [Recovering/Resolving]
  - Antipsychotic drug level increased [Recovered/Resolved]
  - Hypomania [Unknown]
  - Delirium [Recovering/Resolving]
  - Aphasia [Recovering/Resolving]
  - Toxicity to various agents [Unknown]
